FAERS Safety Report 4700822-3 (Version None)
Quarter: 2005Q2

REPORT INFORMATION
  Report Type: 
  Country: None (occurrence: None)
  Receive Date: 20050627
  Receipt Date: 20050627
  Transmission Date: 20051028
  Serious: Yes (Life-Threatening, Hospitalization, Disabling, Other)
  Sender: FDA-Public Use
  Company Number: None

PATIENT
  Age: 13 Year
  Sex: Male
  Weight: 58.9676 kg

DRUGS (2)
  1. ULTRASE MT18 [Suspect]
     Indication: CYSTIC FIBROSIS
     Dosage: 5-6 MEALS ORAL
     Route: 048
     Dates: start: 19940501, end: 20020701
  2. ULTRASE MT20 [Suspect]
     Dosage: 5-6 MEALS ORAL
     Route: 048
     Dates: start: 20020701, end: 20050201

REACTIONS (4)
  - DECREASED ACTIVITY [None]
  - FEELING ABNORMAL [None]
  - PAIN [None]
  - PHARMACEUTICAL PRODUCT COMPLAINT [None]
